FAERS Safety Report 23128183 (Version 1)
Quarter: 2023Q4

REPORT INFORMATION
  Report Type: Spontaneous
  Country: GR (occurrence: GR)
  Receive Date: 20231031
  Receipt Date: 20231031
  Transmission Date: 20240109
  Serious: Yes (Other)
  Sender: FDA-Public Use
  Company Number: GR-NORMA-587

PATIENT
  Sex: Female

DRUGS (2)
  1. MIRTAZAPINE [Suspect]
     Active Substance: MIRTAZAPINE
     Indication: Sleep disorder
     Dosage: 15 MILLIGRAM
  2. LEVETIRACETAM [Concomitant]
     Active Substance: LEVETIRACETAM
     Indication: Generalised tonic-clonic seizure
     Dosage: FEMALE PATIENTS WITH ^GENERALIZED TONIC-CLONIC SEIZURES ONLY^ UNDER TREATMENT WITH A THERAPEUTIC DOS

REACTIONS (1)
  - Myoclonic epilepsy [Recovered/Resolved]
